FAERS Safety Report 8956677 (Version 3)
Quarter: 2013Q1

REPORT INFORMATION
  Report Type: Spontaneous
  Country: US (occurrence: US)
  Receive Date: 20121210
  Receipt Date: 20130220
  Transmission Date: 20140127
  Serious: No
  Sender: FDA-Public Use
  Company Number: US-PFIZER INC-2012305431

PATIENT
  Age: 78 Year
  Sex: Female
  Weight: 66.66 kg

DRUGS (3)
  1. PREMPRO [Suspect]
     Indication: MENOPAUSE
     Dosage: ESTROGENS CONJUGATED 0.45MG/MEDROXYPROGESTERONE ACETATE 1.5MG, 2X/WEEK
     Dates: end: 20121122
  2. PREMPHASE [Suspect]
     Dosage: UNK
  3. BYSTOLIC [Concomitant]
     Indication: BLOOD PRESSURE ABNORMAL
     Dosage: 5 MG, UNK

REACTIONS (4)
  - Abdominal distension [Not Recovered/Not Resolved]
  - Fluid retention [Unknown]
  - Joint swelling [Unknown]
  - Weight increased [Unknown]
